FAERS Safety Report 23695167 (Version 1)
Quarter: 2024Q2

REPORT INFORMATION
  Report Type: Spontaneous
  Country: US (occurrence: US)
  Receive Date: 20240402
  Receipt Date: 20240402
  Transmission Date: 20240716
  Serious: No
  Sender: FDA-Public Use
  Company Number: ENDG23-02592

PATIENT
  Sex: Female

DRUGS (4)
  1. HYDROXYUREA [Suspect]
     Active Substance: HYDROXYUREA
     Indication: Platelet count increased
     Dosage: UNK UNKNOWN, UNKNOWN
     Route: 065
     Dates: start: 202203
  2. HYDROXYUREA [Suspect]
     Active Substance: HYDROXYUREA
     Dosage: UNK UNKNOWN, UNKNOWN  (TWO TABLETS DAILY FROM MONDAY TO FRIDAY AND ONE TABLET DAILY ON THE WEEKEND)
     Route: 065
     Dates: start: 2022
  3. HYDROXYUREA [Suspect]
     Active Substance: HYDROXYUREA
     Dosage: UNK UNKNOWN, UNKNOWN (DOSE HAS BEEN ADJUSTED MULTIPLE TIMES)
     Route: 065
     Dates: start: 202302
  4. GABAPENTIN [Concomitant]
     Active Substance: GABAPENTIN
     Indication: Ill-defined disorder
     Dosage: 100 MG, BIWEEKLY
     Route: 065

REACTIONS (3)
  - Platelet count increased [Unknown]
  - Off label use [Unknown]
  - Drug ineffective for unapproved indication [Unknown]

NARRATIVE: CASE EVENT DATE: 20220101
